FAERS Safety Report 14261313 (Version 1)
Quarter: 2017Q4

REPORT INFORMATION
  Report Type: Spontaneous
  Country: GB (occurrence: GB)
  Receive Date: 20171208
  Receipt Date: 20171208
  Transmission Date: 20180321
  Serious: Yes (Other)
  Sender: FDA-Public Use
  Company Number: GB-009507513-1709GBR010194

PATIENT
  Age: 63 Year
  Sex: Female

DRUGS (1)
  1. ZEPATIER [Suspect]
     Active Substance: ELBASVIR\GRAZOPREVIR
     Indication: HEPATITIS C
     Dosage: ONCE A DAY (REPORTED AS OD)
     Route: 048
     Dates: start: 20170810, end: 20170907

REACTIONS (4)
  - Colitis microscopic [Recovered/Resolved]
  - Oral candidiasis [Unknown]
  - Procedural complication [Unknown]
  - Vomiting [Recovered/Resolved]

NARRATIVE: CASE EVENT DATE: 2017
